FAERS Safety Report 20917771 (Version 2)
Quarter: 2022Q2

REPORT INFORMATION
  Report Type: Spontaneous
  Country: DE (occurrence: DE)
  Receive Date: 20220606
  Receipt Date: 20220607
  Transmission Date: 20220721
  Serious: Yes (Hospitalization, Other)
  Sender: FDA-Public Use
  Company Number: DE-MLMSERVICE-20220519-3567711-1

PATIENT
  Age: 64 Year
  Sex: Female

DRUGS (1)
  1. QUETIAPINE [Suspect]
     Active Substance: QUETIAPINE
     Indication: Product used for unknown indication
     Dosage: UNK
     Route: 048

REACTIONS (11)
  - Suicide attempt [Unknown]
  - Miosis [Recovered/Resolved]
  - Snoring [Recovered/Resolved]
  - Hyperventilation [Recovered/Resolved]
  - Mucosal ulceration [Recovering/Resolving]
  - Sopor [Recovered/Resolved]
  - Leukocyturia [Recovering/Resolving]
  - Somnolence [Recovered/Resolved]
  - Antipsychotic drug level increased [Recovered/Resolved]
  - Toxicity to various agents [Recovered/Resolved]
  - Intentional overdose [Recovered/Resolved]
